FAERS Safety Report 25299498 (Version 1)
Quarter: 2025Q2

REPORT INFORMATION
  Report Type: Spontaneous
  Country: US (occurrence: US)
  Receive Date: 20250512
  Receipt Date: 20250512
  Transmission Date: 20250717
  Serious: No
  Sender: ROCHE
  Company Number: US-ROCHE-10000273687

PATIENT
  Sex: Female

DRUGS (1)
  1. COTELLIC [Suspect]
     Active Substance: COBIMETINIB FUMARATE
     Indication: Optic nerve neoplasm
     Dosage: 3 TABLETS BY MOUTH 1 TIME A DAY FOR 21 DAYS. EVERY 28 DAYS
     Route: 048

REACTIONS (2)
  - Cardiac dysfunction [Unknown]
  - Off label use [Unknown]
